FAERS Safety Report 9434509 (Version 1)
Quarter: 2013Q3

REPORT INFORMATION
  Report Type: Spontaneous
  Country: FR (occurrence: FR)
  Receive Date: 20130801
  Receipt Date: 20130801
  Transmission Date: 20140515
  Serious: Yes (Hospitalization, Other)
  Sender: FDA-Public Use
  Company Number: FR-ELI_LILLY_AND_COMPANY-FR201307008751

PATIENT
  Age: 72 Year
  Sex: Male
  Weight: 101 kg

DRUGS (9)
  1. EFIENT [Suspect]
     Indication: CORONARY ANGIOPLASTY
     Dosage: 60 MG, SINGLE
     Route: 048
     Dates: start: 20120928
  2. EFIENT [Suspect]
     Dosage: 10 MG, QD
     Route: 048
     Dates: end: 20121001
  3. PLAVIX [Suspect]
     Indication: CORONARY ANGIOPLASTY
     Dosage: 300 MG, UNK
     Route: 048
     Dates: end: 20120927
  4. INEXIUM /01479302/ [Suspect]
     Dosage: 20 MG, QD
     Route: 048
  5. ASPIRIN [Concomitant]
     Dosage: UNK
     Dates: end: 20121025
  6. BRILIQUE [Concomitant]
     Dosage: UNK
     Dates: end: 20121025
  7. LOVENOX [Concomitant]
     Dosage: UNK
     Dates: end: 20121025
  8. INTEGRELIN [Concomitant]
     Dosage: UNK
     Dates: end: 20121001
  9. UNFRACTIONATED HEPARIN [Concomitant]

REACTIONS (3)
  - Device occlusion [Recovered/Resolved]
  - Device occlusion [Recovered/Resolved]
  - Drug ineffective [Recovered/Resolved]
